FAERS Safety Report 15082188 (Version 1)
Quarter: 2018Q2

REPORT INFORMATION
  Report Type: Spontaneous
  Country: DE (occurrence: DE)
  Receive Date: 20180628
  Receipt Date: 20180628
  Transmission Date: 20180711
  Serious: Yes (Life-Threatening, Hospitalization)
  Sender: FDA-Public Use
  Company Number: DE-WEST-WARD PHARMACEUTICALS CORP.-DE-H14001-18-05188

PATIENT
  Age: 78 Year
  Sex: Female
  Weight: 76.5 kg

DRUGS (15)
  1. IRINOTECAN [Suspect]
     Active Substance: IRINOTECAN
     Route: 042
     Dates: start: 20150515
  2. GRANISETRON [Concomitant]
     Active Substance: GRANISETRON
     Indication: NAUSEA
     Dosage: AS REQUIRED
     Route: 048
  3. CANDESARTAN COMP. [Concomitant]
     Indication: HYPERTENSION
     Route: 048
  4. BEVACIZUMAB. [Suspect]
     Active Substance: BEVACIZUMAB
     Indication: COLORECTAL CANCER METASTATIC
     Route: 042
     Dates: start: 20150115
  5. BEVACIZUMAB. [Suspect]
     Active Substance: BEVACIZUMAB
     Route: 042
     Dates: start: 20160408
  6. GLANDOMED [Concomitant]
     Indication: STOMATITIS
     Route: 048
     Dates: start: 20150424, end: 20150605
  7. L-THYROXIN [Concomitant]
     Active Substance: LEVOTHYROXINE SODIUM
     Indication: HYPOTHYROIDISM
     Route: 048
  8. CAPECITABINE. [Suspect]
     Active Substance: CAPECITABINE
     Indication: COLORECTAL CANCER
     Dosage: 14 DAYS FOLLOWED BY 7 DAY BREAK
     Route: 048
     Dates: start: 20150306, end: 20160422
  9. IRINOTECAN [Suspect]
     Active Substance: IRINOTECAN
     Dosage: DAY1, DAY8 AND DAY 22 OF CYCLE
     Route: 042
     Dates: start: 20180318
  10. BEVACIZUMAB. [Suspect]
     Active Substance: BEVACIZUMAB
     Route: 042
     Dates: start: 20151127
  11. LOPERAMID [Concomitant]
     Active Substance: LOPERAMIDE
     Indication: DIARRHOEA
     Dosage: AS REQUIRED.
     Route: 048
  12. DYNEXAN (GERMANY) [Concomitant]
     Indication: STOMATITIS
     Dosage: AS REQUIRED
     Route: 048
  13. IRINOTECAN [Suspect]
     Active Substance: IRINOTECAN
     Dosage: D1, D8 AND D21 OF CYCLE
     Route: 042
     Dates: start: 20150306, end: 20150424
  14. BEVACIZUMAB. [Suspect]
     Active Substance: BEVACIZUMAB
     Route: 042
     Dates: start: 20150306
  15. IRINOTECAN [Suspect]
     Active Substance: IRINOTECAN
     Indication: COLORECTAL CANCER
     Dosage: DURING 14 DAYS FOLLOWED BY 7 DAY BREAK
     Route: 042
     Dates: start: 20150508

REACTIONS (4)
  - Subileus [Recovered/Resolved]
  - Diarrhoea [Unknown]
  - General physical health deterioration [Recovered/Resolved]
  - Acute kidney injury [Recovering/Resolving]

NARRATIVE: CASE EVENT DATE: 20151130
